FAERS Safety Report 26007270 (Version 2)
Quarter: 2025Q4

REPORT INFORMATION
  Report Type: Spontaneous
  Country: CN (occurrence: CN)
  Receive Date: 20251106
  Receipt Date: 20251118
  Transmission Date: 20260117
  Serious: Yes (Hospitalization, Other)
  Sender: BRISTOL-MYERS SQUIBB COMPANY
  Company Number: CN-MLMSERVICE-20251020-PI683611-00117-1

PATIENT
  Age: 57 Year
  Sex: Male

DRUGS (7)
  1. LENALIDOMIDE [Suspect]
     Active Substance: LENALIDOMIDE
     Indication: Plasma cell myeloma
     Dosage: CHEMOTHERAPY WITH BORTEZOMIB, LENALIDOMIDE, AND DEXAMETHASONE FOR ONE YEAR; LENALIDOMIDE, 4MG, TAKE ONCE DAILY FOR 21 DAYS, THEN TAKE AGAIN FOR 14 DAYS AFTER A REST PERIOD; BRD REGIMEN (BORTEZOMIB + LENALIDOMIDE + DEXAMETHASONE) WAS ADMINISTERED FOR 6 CYCLES, WITH EACH CYCLE CONSISTING OF 4 WEEKS FO
     Dates: start: 202010, end: 202110
  2. DEXAMETHASONE [Suspect]
     Active Substance: DEXAMETHASONE
     Indication: Plasma cell myeloma
     Dosage: CHEMOTHERAPY WITH BORTEZOMIB, LENALIDOMIDE, AND DEXAMETHASONE FOR ONE YEAR; DEXAMETHASONE, 27 TABLETS (0.75MG PER TABLET), FOR ORAL USE, ONCE A WEEK; BRD REGIMEN (BORTEZOMIB + LENALIDOMIDE + DEXAMETHASONE) WAS ADMINISTERED FOR 6 CYCLES, WITH EACH CYCLE CONSISTING OF 4 WEEKS FOLLOWED BY A 2 WEEK BREA
     Dates: start: 202010, end: 202010
  3. DEXAMETHASONE [Suspect]
     Active Substance: DEXAMETHASONE
     Dosage: DEXAMETHASONE, 27 TABLETS (0.75MG PER TABLET), FOR ORAL USE, ONCE A WEEK; MAINTENANCE TREATMENT (BORTEZOMIB + DALETUMAB + DEXAMETHASONE); BORTEZOMIB, DALETUMAB AND DEXAMETHASONE FOR EIGHT MONTHS
     Dates: start: 202207, end: 20230322
  4. DEXAMETHASONE [Suspect]
     Active Substance: DEXAMETHASONE
     Dosage: CHEMOTHERAPY WITH BORTEZOMIB, LENALIDOMIDE, AND DEXAMETHASONE FOR ONE YEAR; DEXAMETHASONE, 27 TABLETS (0.75MG PER TABLET), FOR ORAL USE, ONCE A WEEK; BRD REGIMEN (BORTEZOMIB + LENALIDOMIDE + DEXAMETHASONE) WAS ADMINISTERED FOR 6 CYCLES, WITH EACH CYCLE CONSISTING OF 4 WEEKS FOLLOWED BY A 2 WEEK BREA
     Dates: start: 202110
  5. BORTEZOMIB [Suspect]
     Active Substance: BORTEZOMIB
     Indication: Plasma cell myeloma
     Dosage: CHEMOTHERAPY WITH BORTEZOMIB, LENALIDOMIDE, AND DEXAMETHASONE FOR ONE YEAR; BORTEZOMIB, 2MG (1.3MG/M?), SUBCUTANEOUS INJECTION, ONCE WEEKLY; BRD REGIMEN (BORTEZOMIB + LENALIDOMIDE + DEXAMETHASONE) WAS ADMINISTERED FOR 6 CYCLES, WITH EACH CYCLE CONSISTING OF 4 WEEKS FOLLOWED BY A 2 WEEK BREAK BEFORE
     Route: 058
     Dates: start: 202010, end: 202110
  6. BORTEZOMIB [Suspect]
     Active Substance: BORTEZOMIB
     Dosage: BORTEZOMIB, 2MG (1.3MG/M?), SUBCUTANEOUS INJECTION, ONCE WEEKLY; MAINTENANCE TREATMENT (BORTEZOMIB + DALETUMAB + DEXAMETHASONE); BORTEZOMIB, DALETUMAB AND DEXAMETHASONE FOR EIGHT MONTHS
     Route: 058
     Dates: start: 202207, end: 20230322
  7. BORTEZOMIB [Suspect]
     Active Substance: BORTEZOMIB
     Dosage: BORTEZOMIB, 2MG (1.3MG/M?), SUBCUTANEOUS INJECTION, ONCE WEEKLY; THE PATIENT UNDERWENT CONSOLIDATION TREATMENT. BORTEZOMIB COMBINED WITH DEXAMETHASONE WAS ADMINISTERED FOR 4 COURSES, WITH 3 DOSES PER COURSE (THE PATIENT COMPLETED THE FIRST LINE TREATMENT).
     Route: 058
     Dates: start: 202110, end: 20230322

REACTIONS (4)
  - Thrombocytopenia [Recovered/Resolved]
  - Hepatitis G [Recovered/Resolved]
  - Listeria sepsis [Recovered/Resolved]
  - Meningitis listeria [Recovered/Resolved]

NARRATIVE: CASE EVENT DATE: 20230101
